FAERS Safety Report 6649773-8 (Version None)
Quarter: 2010Q1

REPORT INFORMATION
  Report Type: 
  Country: None (occurrence: None)
  Receive Date: 20100322
  Receipt Date: 20100308
  Transmission Date: 20100710
  Serious: Yes (Hospitalization)
  Sender: FDA-Public Use
  Company Number: B0640951A

PATIENT
  Age: 67 Year
  Sex: Female

DRUGS (7)
  1. SALBUTAMOL SULPHATE UNSPECIFIED INHALER DEVICE (ALBUTEROL SULFATE) (GE [Suspect]
     Dosage: INHALED
     Route: 055
  2. DOBUTAMINE INFUSION (DOBUTAMINE) [Suspect]
  3. OXYGEN [Concomitant]
  4. FLUTICASONE+SALMETEROL [Concomitant]
  5. TIOTROPIUM [Concomitant]
  6. DUONEB [Concomitant]
  7. BUDESONIDE [Concomitant]

REACTIONS (3)
  - ARTERIOSPASM CORONARY [None]
  - BLOOD PRESSURE INCREASED [None]
  - MALAISE [None]
